FAERS Safety Report 7687024-6 (Version None)
Quarter: 2011Q3

REPORT INFORMATION
  Report Type: 
  Country: None (occurrence: None)
  Receive Date: 20110816
  Receipt Date: 20110810
  Transmission Date: 20111222
  Serious: Yes (Other)
  Sender: FDA-Public Use
  Company Number: US-ASTRAZENECA-2011SE47885

PATIENT
  Sex: Female

DRUGS (4)
  1. PREDNISONE [Concomitant]
  2. HYDROXYCHLOROQUINE [Concomitant]
  3. VIMOVO [Suspect]
     Indication: ARTHRITIS
     Dosage: 500 MG
     Route: 048
     Dates: start: 20110723
  4. ATENOLOL [Concomitant]

REACTIONS (1)
  - HYPOTENSION [None]
